FAERS Safety Report 7044174-5 (Version None)
Quarter: 2010Q4

REPORT INFORMATION
  Report Type: 
  Country: None (occurrence: None)
  Receive Date: 20101013
  Receipt Date: 20101006
  Transmission Date: 20110411
  Serious: No
  Sender: FDA-Public Use
  Company Number: US-PFIZER INC-2010105377

PATIENT
  Sex: Male
  Weight: 70 kg

DRUGS (14)
  1. PROVERA [Suspect]
     Indication: OFF LABEL USE
     Dosage: 10 MG, 6X/DAILY
     Route: 048
  2. PROVERA [Suspect]
     Indication: HYPOVENTILATION
     Dosage: 20 MG, 3X/DAY
     Route: 048
     Dates: start: 20010601
  3. PROVERA [Suspect]
     Indication: RESPIRATORY ACIDOSIS
  4. PROVERA [Suspect]
     Indication: RESPIRATORY DISORDER
  5. COZAAR [Concomitant]
     Indication: HYPERTENSION
     Dosage: 25 MG, DAILY
     Route: 048
  6. ATENOLOL [Concomitant]
     Indication: HYPERTENSION
     Dosage: 75 MG, DAILY
     Route: 048
  7. LASIX [Concomitant]
     Dosage: UNK
     Route: 048
  8. PROCRIT [Concomitant]
     Indication: RENAL DISORDER
     Dosage: 6000 IU, WEEKLY
  9. FENTANYL [Concomitant]
     Indication: PAIN
     Dosage: 25 UG, UNK
  10. OXYGEN [Concomitant]
     Indication: TOTAL LUNG CAPACITY DECREASED
     Dosage: UNK
  11. VITAMIN D [Concomitant]
     Dosage: UNK
  12. FOLIC ACID [Concomitant]
     Dosage: UNK
  13. VITAMIN B-12 [Concomitant]
     Dosage: UNK
  14. ASCORBIC ACID [Concomitant]
     Dosage: UNK

REACTIONS (2)
  - HOT FLUSH [None]
  - HYPERHIDROSIS [None]
